FAERS Safety Report 12201044 (Version 5)
Quarter: 2017Q4

REPORT INFORMATION
  Report Type: Spontaneous
  Country: US (occurrence: US)
  Receive Date: 20160322
  Receipt Date: 20171024
  Transmission Date: 20180320
  Serious: Yes (Hospitalization, Other)
  Sender: FDA-Public Use
  Company Number: US-ELI_LILLY_AND_COMPANY-US201603003582

PATIENT
  Sex: Male
  Weight: 60.32 kg

DRUGS (3)
  1. ZYPREXA [Suspect]
     Active Substance: OLANZAPINE
     Dosage: 10 MG, UNKNOWN
     Route: 065
     Dates: start: 2006
  2. IBUPROFEN. [Concomitant]
     Active Substance: IBUPROFEN
     Dosage: UNK, UNKNOWN
     Route: 065
  3. ZYPREXA [Suspect]
     Active Substance: OLANZAPINE
     Indication: SCHIZOPHRENIA
     Dosage: 10 MG, UNKNOWN
     Route: 065
     Dates: start: 2003, end: 2006

REACTIONS (11)
  - Gastrointestinal disorder [Unknown]
  - Skin cancer [Unknown]
  - Skin reaction [Not Recovered/Not Resolved]
  - Chest pain [Unknown]
  - Skin hyperpigmentation [Not Recovered/Not Resolved]
  - Gastritis [Unknown]
  - Hyperglycaemia [Unknown]
  - Gastrointestinal carcinoma [Unknown]
  - Skin infection [Not Recovered/Not Resolved]
  - Nausea [Recovered/Resolved]
  - Accident [Unknown]
